FAERS Safety Report 7946535-6 (Version None)
Quarter: 2011Q4

REPORT INFORMATION
  Report Type: 
  Country: None (occurrence: None)
  Receive Date: 20111129
  Receipt Date: 20110926
  Transmission Date: 20120403
  Serious: Yes (Other)
  Sender: FDA-Public Use
  Company Number: JP-PFIZER INC-2011223133

PATIENT
  Age: 74 Year
  Sex: Female

DRUGS (3)
  1. MIGLITOL [Suspect]
     Dosage: 150 MG, 1X/DAY
     Route: 048
     Dates: start: 20080101, end: 20101101
  2. MIGLITOL [Suspect]
     Dosage: 100 MG, 1X/DAY
     Route: 048
     Dates: start: 20071001
  3. MIGLITOL [Suspect]
     Dosage: 100 MG, 1X/DAY
     Route: 048
     Dates: start: 20101101

REACTIONS (1)
  - HYPOGLYCAEMIA [None]
